FAERS Safety Report 6011411-5 (Version None)
Quarter: 2008Q4

REPORT INFORMATION
  Report Type: 
  Country: None (occurrence: None)
  Receive Date: 20081217
  Receipt Date: 20081217
  Transmission Date: 20090506
  Serious: Yes (Other)
  Sender: FDA-Public Use
  Company Number: None

PATIENT
  Age: 35 Year
  Sex: Female
  Weight: 61.2356 kg

DRUGS (2)
  1. SINGULAIR [Suspect]
     Indication: ASTHMA EXERCISE INDUCED
     Dosage: 10MG ONCE DAILY PO
     Route: 048
     Dates: start: 20081104, end: 20081206
  2. SINGULAIR [Suspect]
     Indication: POSTNASAL DRIP
     Dosage: 10MG ONCE DAILY PO
     Route: 048
     Dates: start: 20081104, end: 20081206

REACTIONS (4)
  - DEPRESSION [None]
  - IRRITABILITY [None]
  - MALAISE [None]
  - MOOD ALTERED [None]
